FAERS Safety Report 5994575-9 (Version None)
Quarter: 2008Q4

REPORT INFORMATION
  Report Type: 
  Country: None (occurrence: None)
  Receive Date: 20081212
  Receipt Date: 20080909
  Transmission Date: 20090506
  Serious: No
  Sender: FDA-Public Use
  Company Number: US-ABBOTT-08P-163-0475404-00

PATIENT
  Sex: Female
  Weight: 68.1 kg

DRUGS (6)
  1. HUMIRA [Suspect]
     Indication: CROHN'S DISEASE
     Dosage: LOADING DOSE
     Dates: start: 20080814, end: 20080814
  2. HUMIRA [Suspect]
  3. HUMIRA [Suspect]
  4. ACETAMINOPHEN [Concomitant]
     Indication: PAIN
     Dosage: TWICE DAILY AS NEEDED
     Dates: start: 20080906, end: 20080907
  5. ESOMEPRAZOLE MAGNESIUM [Concomitant]
     Indication: GASTROOESOPHAGEAL REFLUX DISEASE
     Route: 048
  6. OXYCODONE HCL [Concomitant]
     Indication: PAIN
     Dosage: EVERY 4 HOURS AS NEEDED
     Dates: start: 20080801

REACTIONS (5)
  - ARTHRALGIA [None]
  - HEADACHE [None]
  - JOINT SWELLING [None]
  - PAIN [None]
  - PARAESTHESIA [None]
